FAERS Safety Report 17491877 (Version 1)
Quarter: 2020Q1

REPORT INFORMATION
  Report Type: Spontaneous
  Country: US (occurrence: US)
  Receive Date: 20200304
  Receipt Date: 20200304
  Transmission Date: 20200409
  Serious: No
  Sender: FDA-Public Use
  Company Number: US-CIPLA LTD.-2019US08314

PATIENT

DRUGS (3)
  1. BUDESONIDE. [Suspect]
     Active Substance: BUDESONIDE
     Indication: SINUSITIS
     Dosage: UNK, QOD, ENT SURGEON USES THE DRUG EVERY OTHER DAY IN SALINE RINSE IN HER NOSE
     Route: 065
  2. BUDESONIDE. [Suspect]
     Active Substance: BUDESONIDE
     Indication: PROPHYLAXIS
     Dosage: 1 MG/2 ML, QD
     Route: 065
     Dates: start: 2016
  3. BUDESONIDE. [Suspect]
     Active Substance: BUDESONIDE
     Dosage: 1 MG/2 ML, QD
     Route: 065

REACTIONS (3)
  - Product use in unapproved indication [Unknown]
  - Off label use [Unknown]
  - Expired product administered [Unknown]

NARRATIVE: CASE EVENT DATE: 2016
